FAERS Safety Report 14009710 (Version 2)
Quarter: 2017Q4

REPORT INFORMATION
  Report Type: Spontaneous
  Country: JP (occurrence: JP)
  Receive Date: 20170925
  Receipt Date: 20171204
  Transmission Date: 20180321
  Serious: Yes (Hospitalization)
  Sender: FDA-Public Use
  Company Number: JP-MITSUBISHI TANABE PHARMA CORPORATION-MTPC2017-0019951

PATIENT
  Age: 79 Year
  Sex: Female
  Weight: 37 kg

DRUGS (5)
  1. FAMOTIDINE. [Concomitant]
     Active Substance: FAMOTIDINE
     Route: 042
     Dates: start: 20170910
  2. RADICUT [Suspect]
     Active Substance: EDARAVONE
     Route: 041
     Dates: start: 20170910
  3. PERDIPINE [Concomitant]
     Active Substance: NICARDIPINE HYDROCHLORIDE
     Route: 042
     Dates: start: 20170910
  4. UNASYN [Concomitant]
     Active Substance: AMPICILLIN SODIUM\SULBACTAM SODIUM
     Route: 041
  5. GRTPA [Suspect]
     Active Substance: ALTEPLASE
     Indication: THROMBOTIC CEREBRAL INFARCTION
     Route: 041
     Dates: start: 20170910, end: 20170910

REACTIONS (1)
  - Cerebellar haemorrhage [Not Recovered/Not Resolved]

NARRATIVE: CASE EVENT DATE: 20170911
